FAERS Safety Report 23593034 (Version 1)
Quarter: 2024Q1

REPORT INFORMATION
  Report Type: Spontaneous
  Country: FR (occurrence: FR)
  Receive Date: 20240304
  Receipt Date: 20240304
  Transmission Date: 20240409
  Serious: Yes (Hospitalization)
  Sender: FDA-Public Use
  Company Number: None

PATIENT
  Age: 20 Year
  Sex: Male
  Weight: 69 kg

DRUGS (2)
  1. PAROXETINE [Suspect]
     Active Substance: PAROXETINE
     Indication: Mixed anxiety and depressive disorder
     Dosage: PAROXETINE BASE
     Route: 048
     Dates: start: 20231031, end: 20231122
  2. ETIFOXINE [Suspect]
     Active Substance: ETIFOXINE
     Indication: Mixed anxiety and depressive disorder
     Route: 048
     Dates: start: 20231031, end: 20231122

REACTIONS (1)
  - Erythema multiforme [Recovering/Resolving]

NARRATIVE: CASE EVENT DATE: 20231122
